FAERS Safety Report 21980724 (Version 15)
Quarter: 2025Q2

REPORT INFORMATION
  Report Type: Report from Study
  Country: US (occurrence: US)
  Receive Date: 20230211
  Receipt Date: 20250602
  Transmission Date: 20250717
  Serious: Yes (Hospitalization, Other)
  Sender: TAKEDA
  Company Number: US-TAKEDA-2021TUS079754

PATIENT
  Age: 84 Year
  Sex: Male
  Weight: 93 kg

DRUGS (27)
  1. HUMAN IMMUNOGLOBULIN G [Suspect]
     Active Substance: HUMAN IMMUNOGLOBULIN G
     Indication: IgG deficiency
     Dosage: 10 GRAM, 1/WEEK
     Dates: start: 20210626
  2. HUMAN IMMUNOGLOBULIN G [Suspect]
     Active Substance: HUMAN IMMUNOGLOBULIN G
     Dosage: 11 GRAM, 1/WEEK
  3. HUMAN IMMUNOGLOBULIN G [Suspect]
     Active Substance: HUMAN IMMUNOGLOBULIN G
     Dosage: 12 GRAM, 1/WEEK
  4. HUMAN IMMUNOGLOBULIN G [Suspect]
     Active Substance: HUMAN IMMUNOGLOBULIN G
     Dosage: 14 GRAM, 1/WEEK
  5. ACETAMINOPHEN [Concomitant]
     Active Substance: ACETAMINOPHEN
  6. OXYBUTYNIN CHLORIDE [Concomitant]
     Active Substance: OXYBUTYNIN CHLORIDE
  7. TAMSULOSIN HYDROCHLORIDE [Concomitant]
     Active Substance: TAMSULOSIN HYDROCHLORIDE
  8. TYLENOL EXTRA STRENGTH [Concomitant]
     Active Substance: ACETAMINOPHEN
  9. BACLOFEN [Concomitant]
     Active Substance: BACLOFEN
  10. VITAMINS [Concomitant]
     Active Substance: VITAMINS
  11. ATORVASTATIN CALCIUM [Concomitant]
     Active Substance: ATORVASTATIN CALCIUM
  12. ACARBOSE [Concomitant]
     Active Substance: ACARBOSE
  13. ALLOPURINOL [Concomitant]
     Active Substance: ALLOPURINOL
  14. FINASTERIDE [Concomitant]
     Active Substance: FINASTERIDE
  15. GLIPIZIDE [Concomitant]
     Active Substance: GLIPIZIDE
  16. METFORMIN HYDROCHLORIDE [Concomitant]
     Active Substance: METFORMIN HYDROCHLORIDE
  17. MONTELUKAST SODIUM [Concomitant]
     Active Substance: MONTELUKAST SODIUM
  18. DIPHENHYDRAMINE HYDROCHLORIDE [Concomitant]
     Active Substance: DIPHENHYDRAMINE HYDROCHLORIDE
  19. OMEPRAZOLE [Concomitant]
     Active Substance: OMEPRAZOLE
  20. PRAMIPEXOLE DIHYDROCHLORIDE [Concomitant]
     Active Substance: PRAMIPEXOLE DIHYDROCHLORIDE
  21. NOVOLOG [Concomitant]
     Active Substance: INSULIN ASPART
  22. LORATADINE [Concomitant]
     Active Substance: LORATADINE
  23. FUROSEMIDE [Concomitant]
     Active Substance: FUROSEMIDE
  24. EPINEPHRINE [Concomitant]
     Active Substance: EPINEPHRINE
  25. AZITHROMYCIN [Concomitant]
     Active Substance: AZITHROMYCIN
  26. PIOGLITAZONE [Concomitant]
     Active Substance: PIOGLITAZONE
  27. SITAVIG [Concomitant]
     Active Substance: ACYCLOVIR

REACTIONS (17)
  - Cellulitis [Unknown]
  - Fall [Unknown]
  - Limb injury [Unknown]
  - Lower respiratory tract infection [Recovered/Resolved]
  - Viral infection [Unknown]
  - Loss of consciousness [Unknown]
  - Thrombosis [Unknown]
  - Muscular weakness [Unknown]
  - Nasopharyngitis [Unknown]
  - Illness [Unknown]
  - Product dose omission issue [Unknown]
  - Multiple allergies [Not Recovered/Not Resolved]
  - Swelling face [Unknown]
  - Upper respiratory tract infection [Unknown]
  - Abdominal distension [Unknown]
  - Cough [Unknown]
  - Diarrhoea [Unknown]

NARRATIVE: CASE EVENT DATE: 20230129
